FAERS Safety Report 9942708 (Version 1)
Quarter: 2014Q1

REPORT INFORMATION
  Report Type: Spontaneous
  Country: US (occurrence: US)
  Receive Date: 20140303
  Receipt Date: 20140303
  Transmission Date: 20141002
  Serious: No
  Sender: FDA-Public Use
  Company Number: US-ABBVIE-13P-163-1045272-00

PATIENT
  Age: 51 Year
  Sex: Female

DRUGS (6)
  1. HUMIRA [Suspect]
     Indication: PSORIATIC ARTHROPATHY
     Route: 058
     Dates: start: 200609, end: 200805
  2. HUMIRA [Suspect]
     Route: 058
     Dates: start: 200808
  3. METOPROLOL (NON-ABBOTT) [Concomitant]
     Indication: CARDIOVASCULAR EVENT PROPHYLAXIS
  4. LISINOPRIL (NON-ABBOTT) [Concomitant]
     Indication: HYPERTENSION
  5. MULTIVITAMIN (NON-ABBOTT) [Concomitant]
     Indication: PSORIATIC ARTHROPATHY
  6. OMEPRAZOLE (NON-ABBOTT) [Concomitant]
     Indication: GASTROOESOPHAGEAL REFLUX DISEASE

REACTIONS (2)
  - Injection site pain [Not Recovered/Not Resolved]
  - Injection site pain [Not Recovered/Not Resolved]
